FAERS Safety Report 8153969-6 (Version None)
Quarter: 2012Q1

REPORT INFORMATION
  Report Type: 
  Country: None (occurrence: None)
  Receive Date: 20120221
  Receipt Date: 20120221
  Transmission Date: 20120608
  Serious: Yes (Other)
  Sender: FDA-Public Use
  Company Number: None

PATIENT
  Age: 40 Year
  Sex: Female
  Weight: 63.502 kg

DRUGS (1)
  1. AVELOX [Suspect]
     Indication: PNEUMONIA
     Dosage: 1 TABLET
     Route: 048
     Dates: start: 20120215, end: 20120216

REACTIONS (8)
  - CONDITION AGGRAVATED [None]
  - DIZZINESS [None]
  - TENDONITIS [None]
  - LETHARGY [None]
  - PLANTAR FASCIITIS [None]
  - MUSCULAR WEAKNESS [None]
  - FEELING ABNORMAL [None]
  - ANXIETY [None]
